FAERS Safety Report 15867791 (Version 1)
Quarter: 2019Q1

REPORT INFORMATION
  Report Type: Spontaneous
  Country: US (occurrence: US)
  Receive Date: 20190102
  Receipt Date: 20190102
  Transmission Date: 20190417
  Serious: No
  Sender: FDA-Public Use
  Company Number: None

PATIENT
  Age: 52 Year
  Sex: Female

DRUGS (4)
  1. LEVOTHYROXINE. [Concomitant]
     Active Substance: LEVOTHYROXINE
  2. LOVASTATIN. [Concomitant]
     Active Substance: LOVASTATIN
  3. PREDNISONE. [Concomitant]
     Active Substance: PREDNISONE
  4. RASUVO [Suspect]
     Active Substance: METHOTREXATE SODIUM
     Indication: RHEUMATOID ARTHRITIS
     Dates: start: 200803, end: 201803

REACTIONS (2)
  - Hepatic enzyme increased [None]
  - Rheumatoid arthritis [None]

NARRATIVE: CASE EVENT DATE: 20180330
